FAERS Safety Report 24932855 (Version 4)
Quarter: 2025Q1

REPORT INFORMATION
  Report Type: Report from Study
  Country: US (occurrence: US)
  Receive Date: 20250205
  Receipt Date: 20250305
  Transmission Date: 20250408
  Serious: No
  Sender: AMGEN
  Company Number: US-AMGEN-USASL2025020909

PATIENT
  Age: 73 Year
  Sex: Female

DRUGS (2)
  1. NEULASTA [Suspect]
     Active Substance: PEGFILGRASTIM
     Indication: Prophylaxis
     Dosage: UNK, Q3WK, PER CHEMO
     Route: 065
  2. NEULASTA [Suspect]
     Active Substance: PEGFILGRASTIM
     Dosage: UNK, Q3WK, PER CHEMO
     Route: 065
     Dates: end: 2025

REACTIONS (12)
  - Injection site pain [Recovered/Resolved]
  - Device physical property issue [Unknown]
  - Hypertension [Not Recovered/Not Resolved]
  - Swelling [Unknown]
  - Skin ulcer [Unknown]
  - Pyrexia [Unknown]
  - Nausea [Unknown]
  - Rash [Unknown]
  - Bone pain [Recovering/Resolving]
  - Adverse drug reaction [Unknown]
  - Feeling abnormal [Recovering/Resolving]
  - Alopecia [Unknown]

NARRATIVE: CASE EVENT DATE: 20250101
